FAERS Safety Report 10258093 (Version 1)
Quarter: 2014Q2

REPORT INFORMATION
  Report Type: Spontaneous
  Country: AU (occurrence: None)
  Receive Date: 20140623
  Receipt Date: 20140623
  Transmission Date: 20141212
  Serious: Yes (Hospitalization)
  Sender: FDA-Public Use
  Company Number: None

PATIENT
  Age: 46 Year
  Sex: Female
  Weight: 70 kg

DRUGS (1)
  1. CELEBREX [Suspect]
     Indication: SPINAL OPERATION
     Dosage: 2 PILLS TWICE DAILY TAKEN BY MOUTH
     Route: 048
     Dates: start: 20140613, end: 20140617

REACTIONS (4)
  - Chromaturia [None]
  - Intestinal haemorrhage [None]
  - Colitis [None]
  - Muscle spasms [None]
